FAERS Safety Report 6127133-6 (Version None)
Quarter: 2009Q1

REPORT INFORMATION
  Report Type: 
  Country: None (occurrence: None)
  Receive Date: 20090320
  Receipt Date: 20080929
  Transmission Date: 20090719
  Serious: No
  Sender: FDA-Public Use
  Company Number: US-ABBOTT-08P-163-0477194-00

PATIENT
  Sex: Female
  Weight: 37.228 kg

DRUGS (6)
  1. ERYTHROCYMIN ETHYLSUCCINATE (E.E.S.) [Suspect]
     Indication: IMPAIRED GASTRIC EMPTYING
     Route: 048
     Dates: start: 19880101
  2. LISINOPRIL [Suspect]
     Indication: BLOOD PRESSURE
     Route: 048
  3. LANSOPRAZOLE [Concomitant]
     Indication: ABDOMINAL DISCOMFORT
     Route: 048
  4. HORMONES NOS [Concomitant]
     Indication: HORMONE REPLACEMENT THERAPY
     Route: 062
  5. CODEINE, PHENOBARB ELIXIR [Concomitant]
     Indication: PAIN
     Route: 048
  6. ATENOLOL [Concomitant]
     Indication: BLOOD PRESSURE
     Route: 048

REACTIONS (3)
  - HEADACHE [None]
  - OEDEMA MOUTH [None]
  - WEIGHT DECREASED [None]
